FAERS Safety Report 23774045 (Version 2)
Quarter: 2024Q2

REPORT INFORMATION
  Report Type: Spontaneous
  Country: US (occurrence: US)
  Receive Date: 20240423
  Receipt Date: 20240513
  Transmission Date: 20240716
  Serious: Yes (Hospitalization)
  Sender: FDA-Public Use
  Company Number: US-TEVA-VS-3184637

PATIENT
  Age: 40 Year
  Sex: Female

DRUGS (3)
  1. IBUPROFEN [Suspect]
     Active Substance: IBUPROFEN
     Indication: Differentiation syndrome
     Route: 065
  2. COLCHICINE [Suspect]
     Active Substance: COLCHICINE
     Indication: Differentiation syndrome
     Route: 065
  3. ARSENIC [Suspect]
     Active Substance: ARSENIC
     Indication: Acute promyelocytic leukaemia
     Route: 065

REACTIONS (3)
  - Drug ineffective [Unknown]
  - Pericarditis [Recovering/Resolving]
  - Differentiation syndrome [Recovered/Resolved]
